FAERS Safety Report 5375783-7 (Version None)
Quarter: 2007Q2

REPORT INFORMATION
  Report Type: 
  Country: None (occurrence: None)
  Receive Date: 20070629
  Receipt Date: 20070625
  Transmission Date: 20071010
  Serious: Yes (Hospitalization)
  Sender: FDA-Public Use
  Company Number: GB-ABBOTT-07P-167-0372853-00

PATIENT
  Sex: Female
  Weight: 34 kg

DRUGS (6)
  1. HUMIRA [Suspect]
     Indication: RHEUMATOID ARTHRITIS
     Route: 058
     Dates: start: 20051123, end: 20061230
  2. PREDNISOLONE [Concomitant]
     Indication: DRUG USE FOR UNKNOWN INDICATION
  3. OMEPRAZOLE [Concomitant]
     Indication: DRUG USE FOR UNKNOWN INDICATION
  4. PROPRANOLOL [Concomitant]
     Indication: DRUG USE FOR UNKNOWN INDICATION
  5. TRAMADOL HCL [Concomitant]
     Indication: DRUG USE FOR UNKNOWN INDICATION
  6. ARTHROTEC [Concomitant]
     Indication: DRUG USE FOR UNKNOWN INDICATION

REACTIONS (4)
  - ABULIA [None]
  - DECUBITUS ULCER [None]
  - SYNCOPE [None]
  - WEIGHT DECREASED [None]
